FAERS Safety Report 7364007-7 (Version None)
Quarter: 2011Q1

REPORT INFORMATION
  Report Type: 
  Country: None (occurrence: None)
  Receive Date: 20110321
  Receipt Date: 20100527
  Transmission Date: 20110831
  Serious: Yes (Hospitalization, Other)
  Sender: FDA-Public Use
  Company Number: US-BAYER-201015446NA

PATIENT
  Sex: Female
  Weight: 58.957 kg

DRUGS (10)
  1. YAZ [Suspect]
     Indication: CONTRACEPTION
     Route: 048
     Dates: start: 20070621, end: 20091218
  2. YAZ [Suspect]
     Indication: PREMENSTRUAL SYNDROME
  3. COLACE [Concomitant]
     Dosage: UNK
     Dates: start: 20081201
  4. LORTAB [Concomitant]
     Dosage: UNK
     Dates: start: 20081201
  5. LEVAQUIN [Concomitant]
     Dosage: UNK
     Dates: start: 20081201
  6. PRILOSEC [Concomitant]
     Dosage: UNK
  7. PHENERGAN [Concomitant]
     Dosage: UNK
     Dates: start: 20081201
  8. CEFOXITIN [Concomitant]
     Dosage: UNK
     Route: 042
     Dates: start: 20081201
  9. ZOFRAN [Concomitant]
     Dosage: UNK
     Dates: start: 20081201
  10. UNCODEABLE ^UNCLASSIFIABLE^ [Concomitant]
     Dosage: UNK
     Dates: start: 20081201

REACTIONS (3)
  - GALLBLADDER DISORDER [None]
  - MENTAL DISORDER [None]
  - CHOLELITHIASIS [None]
